FAERS Safety Report 6382017-3 (Version None)
Quarter: 2009Q3

REPORT INFORMATION
  Report Type: 
  Country: None (occurrence: None)
  Receive Date: 20090925
  Receipt Date: 20090914
  Transmission Date: 20100115
  Serious: Yes (Hospitalization)
  Sender: FDA-Public Use
  Company Number: 233637K05USA

PATIENT
  Age: 56 Year
  Sex: Female
  Weight: 55 kg

DRUGS (7)
  1. REBIF [Suspect]
     Indication: MULTIPLE SCLEROSIS
     Dosage: 22 MCG, 3 IN 1 WEEKS, SUBCUTANEOUS, 44 MCG, 3 IN 1 WEEKS, SUBCUTANEOUS
     Route: 058
     Dates: start: 20050520, end: 20050620
  2. REBIF [Suspect]
     Indication: MULTIPLE SCLEROSIS
     Dosage: 22 MCG, 3 IN 1 WEEKS, SUBCUTANEOUS, 44 MCG, 3 IN 1 WEEKS, SUBCUTANEOUS
     Route: 058
     Dates: start: 20050601, end: 20090801
  3. TORADOL [Concomitant]
  4. HYDROCODONE (HYDROCODONE) [Concomitant]
  5. ALPRAZOLAM [Concomitant]
  6. BACLOFEN [Concomitant]
  7. CYMBALTA [Concomitant]

REACTIONS (6)
  - CORONARY ARTERY OCCLUSION [None]
  - HEADACHE [None]
  - HIP FRACTURE [None]
  - MYOCARDIAL INFARCTION [None]
  - NAUSEA [None]
  - TACHYCARDIA [None]
